FAERS Safety Report 19300482 (Version 2)
Quarter: 2021Q3

REPORT INFORMATION
  Report Type: Spontaneous
  Country: US (occurrence: US)
  Receive Date: 20210525
  Receipt Date: 20210802
  Transmission Date: 20211014
  Serious: No
  Sender: FDA-Public Use
  Company Number: US-BAYER-2021-146368

PATIENT
  Age: 38 Year
  Sex: Female

DRUGS (1)
  1. MIRENA [Suspect]
     Active Substance: LEVONORGESTREL
     Dosage: 20?G PER DAY, CONTINUOUSLY
     Route: 015
     Dates: start: 20210426, end: 20210429

REACTIONS (1)
  - Procedural pain [Recovering/Resolving]

NARRATIVE: CASE EVENT DATE: 20210426
